FAERS Safety Report 11720610 (Version 7)
Quarter: 2016Q1

REPORT INFORMATION
  Report Type: Report from Study
  Country: US (occurrence: US)
  Receive Date: 20151110
  Receipt Date: 20160208
  Transmission Date: 20160525
  Serious: Yes (Death, Hospitalization)
  Sender: FDA-Public Use
  Company Number: US-ACTELION-A-US2015-126847

PATIENT
  Age: 48 Year
  Sex: Male

DRUGS (2)
  1. VELETRI [Suspect]
     Active Substance: EPOPROSTENOL
     Indication: PORTOPULMONARY HYPERTENSION
     Dosage: 20.5 NG/KG, PER MIN
     Route: 042
     Dates: start: 20131108, end: 20160117
  2. VELETRI [Suspect]
     Active Substance: EPOPROSTENOL
     Dosage: 17.2 NG/KG, PER MIN
     Route: 042
     Dates: start: 20131014

REACTIONS (9)
  - Hepatic encephalopathy [Not Recovered/Not Resolved]
  - Mental status changes [Not Recovered/Not Resolved]
  - Swelling [Not Recovered/Not Resolved]
  - Dyspnoea [Unknown]
  - Ascites [Not Recovered/Not Resolved]
  - Paracentesis [Not Recovered/Not Resolved]
  - Respiratory distress [Fatal]
  - Disease progression [Fatal]
  - Blood sodium decreased [Not Recovered/Not Resolved]

NARRATIVE: CASE EVENT DATE: 20151024
